FAERS Safety Report 18133828 (Version 1)
Quarter: 2020Q3

REPORT INFORMATION
  Report Type: Spontaneous
  Country: CA (occurrence: CA)
  Receive Date: 20200811
  Receipt Date: 20200811
  Transmission Date: 20201103
  Serious: Yes (Other)
  Sender: FDA-Public Use
  Company Number: CA-B.I. PHARMACEUTICALS,INC./RIDGEFIELD-2020-BI-040325

PATIENT
  Age: 60 Year
  Sex: Female
  Weight: 120 kg

DRUGS (19)
  1. CANAGLIFLOZIN [Concomitant]
     Active Substance: CANAGLIFLOZIN
     Indication: PRODUCT USED FOR UNKNOWN INDICATION
     Route: 065
  2. PREVACID [Concomitant]
     Active Substance: LANSOPRAZOLE
     Indication: PRODUCT USED FOR UNKNOWN INDICATION
     Route: 065
  3. SINGULAIR [Concomitant]
     Active Substance: MONTELUKAST SODIUM
     Indication: PRODUCT USED FOR UNKNOWN INDICATION
     Route: 065
  4. METFORMIN [Concomitant]
     Active Substance: METFORMIN HYDROCHLORIDE
     Indication: PRODUCT USED FOR UNKNOWN INDICATION
     Route: 065
  5. HEPATITIS B SURFACE ANTIGEN [Concomitant]
     Active Substance: HEPATITIS B VIRUS HBSAG SURFACE PROTEIN ANTIGEN
     Indication: PRODUCT USED FOR UNKNOWN INDICATION
     Route: 065
  6. LYRICA [Suspect]
     Active Substance: PREGABALIN
     Indication: MUSCULOSKELETAL PAIN
     Route: 065
  7. HEPATITIS A VACCINE [Concomitant]
     Active Substance: HEPATITIS A VIRUS STRAIN HM175 ANTIGEN (FORMALDEHYDE INACTIVATED)
     Indication: PRODUCT USED FOR UNKNOWN INDICATION
     Route: 065
  8. ACTEMRA [Suspect]
     Active Substance: TOCILIZUMAB
     Indication: RHEUMATOID ARTHRITIS
     Route: 042
  9. LYRICA [Suspect]
     Active Substance: PREGABALIN
     Indication: NECK PAIN
     Route: 065
  10. COLD?FX [Concomitant]
     Active Substance: PANAX QUINQUEFOLIUS WHOLE
     Indication: PRODUCT USED FOR UNKNOWN INDICATION
     Route: 065
  11. VORTIOXETINE HYDROBROMIDE [Concomitant]
     Active Substance: VORTIOXETINE HYDROBROMIDE
     Indication: PRODUCT USED FOR UNKNOWN INDICATION
     Route: 065
  12. LYRICA [Suspect]
     Active Substance: PREGABALIN
     Indication: ARTHRALGIA
     Route: 065
  13. LYRICA [Suspect]
     Active Substance: PREGABALIN
     Indication: PAIN IN EXTREMITY
     Route: 065
  14. AVAMYS [Concomitant]
     Active Substance: FLUTICASONE FUROATE
     Indication: PRODUCT USED FOR UNKNOWN INDICATION
     Dosage: DOSAGE FORM:SPRAY, METERED DOSE
     Route: 065
  15. SIMVASTATIN. [Concomitant]
     Active Substance: SIMVASTATIN
     Indication: PRODUCT USED FOR UNKNOWN INDICATION
     Route: 065
  16. MICARDIS PLUS [Suspect]
     Active Substance: HYDROCHLOROTHIAZIDE\TELMISARTAN
     Indication: PRODUCT USED FOR UNKNOWN INDICATION
     Route: 065
  17. MICARDIS PLUS [Suspect]
     Active Substance: HYDROCHLOROTHIAZIDE\TELMISARTAN
     Route: 065
  18. CETIRIZINE HYDROCHLORIDE. [Concomitant]
     Active Substance: CETIRIZINE HYDROCHLORIDE
     Indication: PRODUCT USED FOR UNKNOWN INDICATION
     Route: 065
  19. TRAZODONE [Concomitant]
     Active Substance: TRAZODONE HYDROCHLORIDE
     Indication: PRODUCT USED FOR UNKNOWN INDICATION
     Route: 065

REACTIONS (24)
  - Constipation [Not Recovered/Not Resolved]
  - Neuralgia [Not Recovered/Not Resolved]
  - Viral infection [Not Recovered/Not Resolved]
  - Weight increased [Not Recovered/Not Resolved]
  - Bronchitis [Not Recovered/Not Resolved]
  - Influenza [Not Recovered/Not Resolved]
  - Neck pain [Not Recovered/Not Resolved]
  - Polyp [Not Recovered/Not Resolved]
  - Tinnitus [Not Recovered/Not Resolved]
  - Tympanic membrane perforation [Not Recovered/Not Resolved]
  - Hypotension [Not Recovered/Not Resolved]
  - Musculoskeletal pain [Not Recovered/Not Resolved]
  - Arthralgia [Not Recovered/Not Resolved]
  - Eyelid infection [Not Recovered/Not Resolved]
  - Pain in extremity [Not Recovered/Not Resolved]
  - Sinusitis [Not Recovered/Not Resolved]
  - Cough [Not Recovered/Not Resolved]
  - Heart rate increased [Not Recovered/Not Resolved]
  - Ear disorder [Not Recovered/Not Resolved]
  - Ear infection [Not Recovered/Not Resolved]
  - Localised infection [Not Recovered/Not Resolved]
  - Malaise [Not Recovered/Not Resolved]
  - Dyspnoea [Not Recovered/Not Resolved]
  - Paranasal cyst [Not Recovered/Not Resolved]
